FAERS Safety Report 4296757-3 (Version None)
Quarter: 2004Q1

REPORT INFORMATION
  Report Type: 
  Country: None (occurrence: None)
  Receive Date: 20040126
  Receipt Date: 20030909
  Transmission Date: 20041129
  Serious: No
  Sender: FDA-Public Use
  Company Number: USA030946712

PATIENT
  Age: 8 Year
  Sex: Male
  Weight: 26 kg

DRUGS (2)
  1. STRATTERA [Suspect]
     Indication: ATTENTION DEFICIT/HYPERACTIVITY DISORDER
     Dosage: 50 MG/DAY
     Dates: start: 20030301
  2. ADDERALL 10 [Concomitant]

REACTIONS (5)
  - DISTURBANCE IN ATTENTION [None]
  - DRUG INEFFECTIVE [None]
  - INTENTIONAL MISUSE [None]
  - PRESCRIBED OVERDOSE [None]
  - PSYCHOMOTOR HYPERACTIVITY [None]
